FAERS Safety Report 5711113-6 (Version None)
Quarter: 2008Q2

REPORT INFORMATION
  Report Type: 
  Country: None (occurrence: None)
  Receive Date: 20080418
  Receipt Date: 20080409
  Transmission Date: 20081010
  Serious: Yes (Hospitalization)
  Sender: FDA-Public Use
  Company Number: APP200800274

PATIENT
  Age: 4 Week
  Sex: Male
  Weight: 3.3113 kg

DRUGS (10)
  1. MIDAZOLAM HYDROCHLORIDE [Suspect]
     Indication: SEDATION
     Dosage: 0.3 MG, ONCE, INTRAVENOUS
     Route: 042
     Dates: start: 20071220, end: 20071220
  2. ANGIOMAX [Suspect]
     Indication: ANTICOAGULANT THERAPY
     Dosage: 2.5 MG, ONCE INTRAVENOUS BOLUS
     Route: 040
     Dates: start: 20071220, end: 20071220
  3. MORPHINE [Suspect]
     Indication: SEDATION
     Dosage: 1 MG, ONCE, ORAL
     Route: 048
     Dates: start: 20071220, end: 20071220
  4. PENTOBARBITAL CAP [Suspect]
     Indication: SEDATION
     Dosage: 10 MG, ONCE, ORAL
     Route: 048
     Dates: start: 20071220, end: 20071220
  5. KETAMINE HCL [Suspect]
     Indication: DRUG USE FOR UNKNOWN INDICATION
     Dosage: 0.3 MG, ONCE, INTRAVENOUS
     Route: 042
     Dates: start: 20071220, end: 20071220
  6. LIDOCAINE WITH PRILOCAINE [Concomitant]
  7. DEXTROSE 5% 0.2 SODIUM CHLORIDE [Concomitant]
  8. PROSTAGLANDINS (PROSTAGLANDINS) [Concomitant]
  9. METOCLOPRAMIDE (METOCLOPRMIDE) [Concomitant]
  10. LIDOCAINE WITH PRILOCAINE [Concomitant]

REACTIONS (9)
  - ATRIAL FLUTTER [None]
  - BLOOD PH DECREASED [None]
  - CARDIAC PROCEDURE COMPLICATION [None]
  - CONDITION AGGRAVATED [None]
  - HYPOTENSION [None]
  - OXYGEN SATURATION DECREASED [None]
  - PULMONARY VALVE STENOSIS [None]
  - SUPRAVENTRICULAR TACHYCARDIA [None]
  - VENTRICULAR DYSFUNCTION [None]
